FAERS Safety Report 9422610 (Version 1)
Quarter: 2013Q3

REPORT INFORMATION
  Report Type: Spontaneous
  Country: US (occurrence: US)
  Receive Date: 20130726
  Receipt Date: 20130726
  Transmission Date: 20140515
  Serious: No
  Sender: FDA-Public Use
  Company Number: US-MYLANLABS-2012S1021868

PATIENT
  Age: 75 Year
  Sex: Female
  Weight: 54.43 kg

DRUGS (2)
  1. BUSPIRONE HYDROCHLORIDE [Suspect]
     Indication: ANXIETY
     Route: 048
     Dates: start: 20120925
  2. VALIUM [Concomitant]

REACTIONS (3)
  - Flushing [Not Recovered/Not Resolved]
  - Hyperhidrosis [Not Recovered/Not Resolved]
  - Insomnia [Recovered/Resolved]
